FAERS Safety Report 13728177 (Version 1)
Quarter: 2017Q3

REPORT INFORMATION
  Report Type: Report from Study
  Country: US (occurrence: US)
  Receive Date: 20170707
  Receipt Date: 20170707
  Transmission Date: 20171127
  Serious: Yes (Other)
  Sender: FDA-Public Use
  Company Number: US-AMGEN-USASL2017093761

PATIENT
  Age: 65 Year
  Sex: Female
  Weight: 68.5 kg

DRUGS (12)
  1. GLUCOSAMINE CHONDROITIN COMPLEX [Concomitant]
     Active Substance: CHONDROITIN SULFATE (BOVINE)\GLUCOSAMINE HYDROCHLORIDE
     Dosage: TAKE 2 TABS HS
     Route: 048
  2. TOPROL XL [Concomitant]
     Active Substance: METOPROLOL SUCCINATE
     Dosage: 50 MG, UNK
     Route: 048
  3. ASPIRIN. [Concomitant]
     Active Substance: ASPIRIN
     Dosage: 81 MG, UNK
     Route: 048
  4. HYDRODIURIL [Concomitant]
     Active Substance: HYDROCHLOROTHIAZIDE
     Dosage: 25 MG, UNK
     Route: 048
  5. EPIPEN [Concomitant]
     Active Substance: EPINEPHRINE
     Indication: ANAPHYLACTIC REACTION
     Dosage: 0.3 ML, AS NECESSARY
     Route: 030
  6. ALBUTEROL. [Concomitant]
     Active Substance: ALBUTEROL
     Indication: WHEEZING
  7. ALBUTEROL. [Concomitant]
     Active Substance: ALBUTEROL
     Indication: COUGH
     Dosage: INHALE 2 PUFFS EVERY 4 HOURS AS NEEDED
  8. FLONASE [Concomitant]
     Active Substance: FLUTICASONE PROPIONATE
     Dosage: 50 MG, PLACE 2 SPRAYS INTO BOTH NOSTRILS 2 TIMES DAILY
  9. REPATHA [Suspect]
     Active Substance: EVOLOCUMAB
     Indication: TYPE IIA HYPERLIPIDAEMIA
     Dosage: 140 MG/ML, Q2WK
     Route: 058
     Dates: start: 20161013, end: 20170602
  10. NORVASC [Concomitant]
     Active Substance: AMLODIPINE BESYLATE
     Dosage: 5 MG, UNK
     Route: 048
  11. ZYRTEC [Concomitant]
     Active Substance: CETIRIZINE HYDROCHLORIDE
     Dosage: 10 MG QD, AS NECESSARY
     Route: 048
  12. NEXIUM [Concomitant]
     Active Substance: ESOMEPRAZOLE MAGNESIUM
     Dosage: 40 MG, BID
     Route: 048

REACTIONS (26)
  - Swelling [Unknown]
  - Lipoma [Unknown]
  - Aphakia [Unknown]
  - Cholecystitis acute [Unknown]
  - Essential hypertension [Unknown]
  - Lacrimation decreased [Unknown]
  - Trigger finger [Unknown]
  - Ventricular extrasystoles [Unknown]
  - Barrett^s oesophagus [Unknown]
  - Crohn^s disease [Unknown]
  - Gastrooesophageal reflux disease [Unknown]
  - Respiratory tract congestion [Unknown]
  - Nasal ulcer [Unknown]
  - Facial pain [Unknown]
  - Parasomnia [Unknown]
  - Pharyngeal ulceration [Unknown]
  - Hepatic enzyme increased [Unknown]
  - Cholelithiasis [Unknown]
  - Complex regional pain syndrome [Unknown]
  - Visual impairment [Unknown]
  - Bursitis [Unknown]
  - Palpitations [Unknown]
  - Scab [Unknown]
  - Blepharitis [Unknown]
  - Presbyopia [Unknown]
  - Sinusitis [Not Recovered/Not Resolved]

NARRATIVE: CASE EVENT DATE: 20161224
